FAERS Safety Report 10019718 (Version 2)
Quarter: 2014Q2

REPORT INFORMATION
  Report Type: Spontaneous
  Country: US (occurrence: US)
  Receive Date: 20140318
  Receipt Date: 20140618
  Transmission Date: 20141212
  Serious: No
  Sender: FDA-Public Use
  Company Number: US-GALDERMA-US14000328

PATIENT
  Age: 41 Year
  Sex: Female

DRUGS (7)
  1. MIRVASO (BRIMONIDINE) TOPICAL GEL, 0.33% [Suspect]
     Indication: ERYTHEMA
     Dosage: 0.33%
     Route: 061
     Dates: start: 201312, end: 20131220
  2. MIRVASO (BRIMONIDINE) TOPICAL GEL, 0.33% [Suspect]
     Dosage: 0.33%
     Route: 061
     Dates: start: 201311, end: 201312
  3. MIRVASO (BRIMONIDINE) TOPICAL GEL, 0.33% [Suspect]
     Dosage: 0.33%
     Route: 061
     Dates: start: 201401, end: 201401
  4. MULTIVITAMIN [Concomitant]
  5. TRADER JOE^S MOISTURIZER [Concomitant]
  6. CLINIQUE FOUNDATION [Concomitant]
  7. CETAPHIL [Concomitant]

REACTIONS (7)
  - Feeling hot [Recovered/Resolved]
  - Rash macular [Recovered/Resolved]
  - Erythema [Recovered/Resolved]
  - Pallor [Recovered/Resolved]
  - Flushing [Recovered/Resolved]
  - Drug ineffective for unapproved indication [Recovered/Resolved]
  - Off label use [Recovered/Resolved]
